FAERS Safety Report 13593434 (Version 4)
Quarter: 2017Q3

REPORT INFORMATION
  Report Type: Spontaneous
  Country: JP (occurrence: JP)
  Receive Date: 20170530
  Receipt Date: 20170705
  Transmission Date: 20171127
  Serious: Yes (Hospitalization, Other)
  Sender: FDA-Public Use
  Company Number: JP-GILEAD-2017-0274148

PATIENT
  Age: 68 Year
  Sex: Female
  Weight: 40 kg

DRUGS (7)
  1. HARVONI [Suspect]
     Active Substance: LEDIPASVIR\SOFOSBUVIR
     Indication: HEPATITIS C
     Dosage: 1 DF, QD
     Route: 048
     Dates: start: 20170404, end: 20170422
  2. ENALAPRIL [Concomitant]
     Active Substance: ENALAPRIL
     Dosage: 5 UNK, UNK
     Route: 048
     Dates: start: 20101128
  3. E KEPPRA [Suspect]
     Active Substance: LEVETIRACETAM
     Indication: CEREBRAL HAEMORRHAGE
     Dosage: 500 MG, BID
     Route: 065
     Dates: start: 20170428, end: 20170508
  4. PHENOBAL                           /00023201/ [Suspect]
     Active Substance: PHENOBARBITAL
     Indication: CEREBRAL HAEMORRHAGE
     Dosage: UNK MG, UNK
     Route: 065
     Dates: start: 20170422, end: 20170428
  5. HARVONI [Suspect]
     Active Substance: LEDIPASVIR\SOFOSBUVIR
     Dosage: 1 DF, QD
     Route: 048
     Dates: start: 20170425, end: 20170515
  6. ALTAT [Concomitant]
     Active Substance: ROXATIDINE ACETATE HYDROCHLORIDE
     Dosage: 75 MG, UNK
     Route: 048
     Dates: start: 20101128
  7. CILNIDIPINE [Concomitant]
     Active Substance: CILNIDIPINE
     Dosage: 10 MG, UNK
     Route: 048

REACTIONS (6)
  - Cerebral haemorrhage [Recovered/Resolved]
  - Liver disorder [Unknown]
  - Labelled drug-drug interaction medication error [Recovered/Resolved]
  - Pruritus [Recovered/Resolved]
  - Seizure [Unknown]
  - Rash erythematous [Recovered/Resolved]

NARRATIVE: CASE EVENT DATE: 20170418
